FAERS Safety Report 7307380-8 (Version None)
Quarter: 2011Q1

REPORT INFORMATION
  Report Type: 
  Country: None (occurrence: None)
  Receive Date: 20110209
  Receipt Date: 20110203
  Transmission Date: 20110831
  Serious: Yes (Other)
  Sender: FDA-Public Use
  Company Number: DE-1184161

PATIENT
  Age: 60 Year
  Sex: Female

DRUGS (1)
  1. AZOPT [Suspect]
     Indication: GLAUCOMA
     Dosage: 1 GTT BID OU OPHTHALMIC
     Route: 047
     Dates: start: 20101110, end: 20101112

REACTIONS (6)
  - CRYING [None]
  - AGITATION [None]
  - ASTHENIA [None]
  - AGGRESSION [None]
  - CHEST DISCOMFORT [None]
  - HEADACHE [None]
